FAERS Safety Report 7980332-0 (Version None)
Quarter: 2011Q4

REPORT INFORMATION
  Report Type: 
  Country: None (occurrence: None)
  Receive Date: 20111214
  Receipt Date: 20111207
  Transmission Date: 20120403
  Serious: Yes (Congenital Anomaly, Other)
  Sender: FDA-Public Use
  Company Number: US-TEVA-312685USA

PATIENT
  Sex: Male
  Weight: 3.178 kg

DRUGS (1)
  1. LEVETIRACETAM [Suspect]
     Route: 065

REACTIONS (2)
  - LIVE BIRTH [None]
  - CRYPTORCHISM [None]
